FAERS Safety Report 20827723 (Version 1)
Quarter: 2022Q2

REPORT INFORMATION
  Report Type: Spontaneous
  Country: US (occurrence: US)
  Receive Date: 20220513
  Receipt Date: 20220513
  Transmission Date: 20220721
  Serious: No
  Sender: FDA-Public Use
  Company Number: US-PFIZER INC-202200644840

PATIENT
  Age: 49 Year
  Sex: Female

DRUGS (1)
  1. XELJANZ XR [Suspect]
     Active Substance: TOFACITINIB CITRATE
     Indication: Rheumatoid arthritis
     Dosage: 11 MG, 1X/DAY (ONCE A NIGHT)
     Route: 048
     Dates: end: 20220427

REACTIONS (16)
  - Skin disorder [Recovering/Resolving]
  - Urticaria [Recovering/Resolving]
  - Pruritus [Not Recovered/Not Resolved]
  - Irritability [Not Recovered/Not Resolved]
  - Eye irritation [Unknown]
  - Eye pruritus [Unknown]
  - Skin swelling [Not Recovered/Not Resolved]
  - Erythema [Recovering/Resolving]
  - Sunburn [Unknown]
  - Headache [Unknown]
  - Dry eye [Unknown]
  - Sinus congestion [Unknown]
  - Rhinorrhoea [Unknown]
  - Oropharyngeal pain [Unknown]
  - Sinusitis [Recovering/Resolving]
  - Seasonal allergy [Unknown]

NARRATIVE: CASE EVENT DATE: 20220101
